FAERS Safety Report 14469710 (Version 2)
Quarter: 2018Q1

REPORT INFORMATION
  Report Type: Other
  Country: US (occurrence: US)
  Receive Date: 20180131
  Receipt Date: 20180202
  Transmission Date: 20180509
  Serious: Yes (Other)
  Sender: FDA-Public Use
  Company Number: US-CARDINAL HEALTH SPECIALTY SOLUTIONS-2041160

PATIENT
  Age: 66 Year
  Sex: Female

DRUGS (5)
  1. ENOXAPARIN SODIUM. [Suspect]
     Active Substance: ENOXAPARIN SODIUM
     Route: 058
  2. TICAGRELOR. [Suspect]
     Active Substance: TICAGRELOR
  3. LOW DOSE ADULT ASPIRIN CHEWABLE [Suspect]
     Active Substance: ASPIRIN
     Indication: ANTIPLATELET THERAPY
     Route: 048
  4. ASPIRIN. [Concomitant]
     Active Substance: ASPIRIN
  5. TICAGRELOR. [Suspect]
     Active Substance: TICAGRELOR

REACTIONS (3)
  - Retroperitoneal haematoma [Recovered/Resolved]
  - Vertebral artery dissection [Recovered/Resolved]
  - Haemoglobin decreased [Recovered/Resolved]
